FAERS Safety Report 5270452-6 (Version None)
Quarter: 2007Q1

REPORT INFORMATION
  Report Type: 
  Country: None (occurrence: None)
  Receive Date: 20070315
  Receipt Date: 20070302
  Transmission Date: 20070707
  Serious: Yes (Hospitalization)
  Sender: FDA-Public Use
  Company Number: MEDI-0005278

PATIENT
  Age: 17 Day
  Sex: Female

DRUGS (1)
  1. SYNAGIS [Suspect]
     Indication: HEART DISEASE CONGENITAL
     Dosage: 49.9 MG, 1 IN 1 M, INTRAMUSCULAR
     Route: 030
     Dates: start: 20061220, end: 20061220

REACTIONS (4)
  - BLOOD CULTURE POSITIVE [None]
  - CARDIAC FAILURE CONGESTIVE [None]
  - STAPHYLOCOCCAL INFECTION [None]
  - VIRAL INFECTION [None]
